FAERS Safety Report 17893443 (Version 2)
Quarter: 2021Q2

REPORT INFORMATION
  Report Type: Other
  Country: IT (occurrence: IT)
  Receive Date: 20200615
  Receipt Date: 20210604
  Transmission Date: 20210717
  Serious: Yes (Death)
  Sender: FDA-Public Use
  Company Number: IT-ROCHE-2621493

PATIENT

DRUGS (5)
  1. RITUXIMAB. [Suspect]
     Active Substance: RITUXIMAB
     Indication: CHRONIC LYMPHOCYTIC LEUKAEMIA REFRACTORY
     Dosage: 375 MG/M2 ON DAY 1 OF THE FIRST CYCLE, FOLLOWED BY 500 MG/M2 IV EVERY 2 WEEKS FOR FOUR DOSES AND THE
     Route: 041
  2. IDELALISIB [Suspect]
     Active Substance: IDELALISIB
     Indication: CHRONIC LYMPHOCYTIC LEUKAEMIA RECURRENT
     Route: 048
  3. RITUXIMAB. [Suspect]
     Active Substance: RITUXIMAB
     Indication: CHRONIC LYMPHOCYTIC LEUKAEMIA RECURRENT
     Dosage: 375 MG/M2 ON DAY 1 OF THE FIRST CYCLE, FOLLOWED BY 500 MG/M2 IV EVERY 2 WEEKS FOR FOUR DOSES AND?THE
     Route: 041
  4. IDELALISIB [Suspect]
     Active Substance: IDELALISIB
     Indication: CHRONIC LYMPHOCYTIC LEUKAEMIA REFRACTORY
  5. RITUXIMAB. [Suspect]
     Active Substance: RITUXIMAB
     Dosage: 375 MG/M2 ON DAY 1 OF THE FIRST CYCLE, FOLLOWED BY 500 MG/M2 IV EVERY 2 WEEKS FOR FOUR DOSES AND THE
     Route: 041

REACTIONS (1)
  - Cardiopulmonary failure [Fatal]
